FAERS Safety Report 17305559 (Version 1)
Quarter: 2020Q1

REPORT INFORMATION
  Report Type: Spontaneous
  Country: US (occurrence: US)
  Receive Date: 20200106
  Receipt Date: 20200106
  Transmission Date: 20200409
  Serious: No
  Sender: FDA-Public Use
  Company Number: None

PATIENT
  Age: 29 Year
  Sex: Female

DRUGS (10)
  1. ARANESP [Suspect]
     Active Substance: DARBEPOETIN ALFA
     Indication: RENAL TRANSPLANT
     Dosage: ?          OTHER FREQUENCY:Q4WKS ;?
     Route: 058
     Dates: start: 20191025
  2. FERROUS SULF [Concomitant]
     Active Substance: FERROUS SULFATE
  3. LEVETIRACETA [Concomitant]
  4. CONTOUR TES NEXT [Concomitant]
  5. MIRCOLET MIS LANCETS [Concomitant]
  6. CALCITRIOL. [Concomitant]
     Active Substance: CALCITRIOL
  7. SIMVASTATIN. [Concomitant]
     Active Substance: SIMVASTATIN
  8. CLONIDINE. [Concomitant]
     Active Substance: CLONIDINE
  9. SODIUM BICAR [Concomitant]
  10. NOVOLOG [Concomitant]
     Active Substance: INSULIN ASPART

REACTIONS (2)
  - Pancreas transplant [None]
  - Renal transplant [None]

NARRATIVE: CASE EVENT DATE: 20191124
